FAERS Safety Report 16674245 (Version 1)
Quarter: 2019Q3

REPORT INFORMATION
  Report Type: Report from Study
  Country: IT (occurrence: IT)
  Receive Date: 20190806
  Receipt Date: 20190806
  Transmission Date: 20191004
  Serious: Yes (Hospitalization, Other)
  Sender: FDA-Public Use
  Company Number: IT-BRISTOL-MYERS SQUIBB COMPANY-BMS-2019-074130

PATIENT
  Age: 89 Year
  Sex: Female

DRUGS (7)
  1. WARFARIN SODIUM. [Suspect]
     Active Substance: WARFARIN SODIUM
     Indication: ATRIAL FIBRILLATION
     Dosage: 3.75 MILLIGRAM, DAILY
     Route: 048
     Dates: start: 20190621, end: 20190626
  2. LENTO-KALIUM [Concomitant]
     Active Substance: POTASSIUM CHLORIDE
     Indication: HYPOKALAEMIA
     Dosage: 600 MILLIGRAM
     Route: 048
     Dates: start: 20190618
  3. ALTIAZEM [Suspect]
     Active Substance: DILTIAZEM HYDROCHLORIDE
     Indication: HYPERTENSION
     Dosage: 2 DOSAGE FORM, DAILY
     Route: 048
     Dates: start: 20190621, end: 20190629
  4. CARDIOASPIRIN [Concomitant]
     Active Substance: ASPIRIN
     Indication: ATRIAL FIBRILLATION
     Dosage: 1 DOSAGE FORM
     Route: 048
     Dates: start: 20190114
  5. SELOKEN [METOPROLOL SUCCINATE] [Concomitant]
     Indication: ARRHYTHMIA
     Dosage: 75 MILLIGRAM
     Route: 048
     Dates: start: 20190614
  6. FUROSEMIDE. [Concomitant]
     Active Substance: FUROSEMIDE
     Indication: HYPERTENSION
     Dosage: 50 MILLIGRAM
     Route: 048
     Dates: start: 20190615
  7. PANTOPRAZOLE [Concomitant]
     Active Substance: PANTOPRAZOLE
     Indication: GASTRODUODENAL ULCER
     Dosage: 20 MILLIGRAM
     Route: 048
     Dates: start: 20190614

REACTIONS (5)
  - Erythema [Recovered/Resolved]
  - Cardiac failure [Unknown]
  - Pruritus generalised [Recovered/Resolved]
  - Hypokalaemia [Recovered/Resolved]
  - Haematidrosis [Recovered/Resolved]

NARRATIVE: CASE EVENT DATE: 20190628
